FAERS Safety Report 7745257-4 (Version None)
Quarter: 2011Q3

REPORT INFORMATION
  Report Type: 
  Country: None (occurrence: None)
  Receive Date: 20110913
  Receipt Date: 20110905
  Transmission Date: 20111222
  Serious: Yes (Other)
  Sender: FDA-Public Use
  Company Number: DE-JNJFOC-20110811414

PATIENT
  Sex: Female

DRUGS (10)
  1. METHOTREXATE SODIUM [Concomitant]
     Route: 065
  2. CARBIMAZOLE [Concomitant]
     Route: 065
  3. DICLOFENAC SODIUM [Concomitant]
     Route: 065
  4. RAMIPRIL [Concomitant]
     Route: 065
  5. METOPROLOL TARTRATE [Concomitant]
     Route: 065
  6. LEVOFLOXACIN [Suspect]
     Indication: PRODUCT USED FOR UNKNOWN INDICATION
     Route: 048
  7. MOXIFLOXACIN HYDROCHLORIDE [Concomitant]
     Route: 065
  8. ETANERCEPT [Concomitant]
     Route: 065
  9. QUINOLONE ANTIBACTERIALS [Concomitant]
     Route: 065
  10. OMEPRAZOLE [Concomitant]
     Route: 065

REACTIONS (1)
  - URINARY RETENTION [None]
